FAERS Safety Report 10380420 (Version 1)
Quarter: 2014Q3

REPORT INFORMATION
  Report Type: Spontaneous
  Country: US (occurrence: None)
  Receive Date: 20140812
  Receipt Date: 20140812
  Transmission Date: 20150326
  Serious: Yes (Other)
  Sender: FDA-Public Use
  Company Number: None

PATIENT
  Age: 60 Year
  Sex: Female
  Weight: 49.9 kg

DRUGS (1)
  1. NITROFURANTOIN MONOHYDRATE/MACROCRYSTALS [Suspect]
     Active Substance: NITROFURANTOIN\NITROFURANTOIN MONOHYDRATE
     Indication: URINARY TRACT INFECTION
     Dosage: 1 PILL TWICE DAILY  TAKEN BY MOUTH
     Route: 048
     Dates: start: 20140516, end: 20140523

REACTIONS (4)
  - Pulmonary pain [None]
  - Pneumonia [None]
  - Chromaturia [None]
  - Lung disorder [None]

NARRATIVE: CASE EVENT DATE: 20140618
